FAERS Safety Report 8420232-5 (Version None)
Quarter: 2012Q2

REPORT INFORMATION
  Report Type: 
  Country: None (occurrence: None)
  Receive Date: 20120607
  Receipt Date: 20120530
  Transmission Date: 20120825
  Serious: Yes (Death)
  Sender: FDA-Public Use
  Company Number: US-PFIZER INC-2012130622

PATIENT
  Age: 66 Year
  Sex: Female

DRUGS (2)
  1. SKELAXIN [Suspect]
  2. DILANTIN [Suspect]

REACTIONS (1)
  - HYPERSENSITIVITY [None]
